FAERS Safety Report 24134581 (Version 2)
Quarter: 2024Q3

REPORT INFORMATION
  Report Type: Spontaneous
  Country: US (occurrence: US)
  Receive Date: 20240725
  Receipt Date: 20240725
  Transmission Date: 20241017
  Serious: Yes (Death, Other)
  Sender: BIOVITRUM
  Company Number: US-BIOVITRUM-2024-US-010189

PATIENT
  Sex: Male

DRUGS (8)
  1. PACRITINIB [Suspect]
     Active Substance: PACRITINIB
     Indication: Chronic myelomonocytic leukaemia
     Dosage: BID
  2. PACRITINIB [Suspect]
     Active Substance: PACRITINIB
     Indication: Splenomegaly
  3. VENETOCLAX [Suspect]
     Active Substance: VENETOCLAX
     Indication: Chronic myelomonocytic leukaemia
     Dosage: DAILY
  4. VENETOCLAX [Suspect]
     Active Substance: VENETOCLAX
     Indication: Splenomegaly
  5. VORICONAZOLE [Suspect]
     Active Substance: VORICONAZOLE
     Indication: Chronic myelomonocytic leukaemia
     Dosage: BID
  6. VORICONAZOLE [Suspect]
     Active Substance: VORICONAZOLE
     Indication: Splenomegaly
  7. AZACITIDINE [Suspect]
     Active Substance: AZACITIDINE
     Indication: Chronic myelomonocytic leukaemia
     Dosage: STANDARD DOSE
  8. AZACITIDINE [Suspect]
     Active Substance: AZACITIDINE
     Indication: Splenomegaly

REACTIONS (4)
  - Febrile neutropenia [Fatal]
  - Disease progression [Fatal]
  - Splenomegaly [Fatal]
  - Off label use [Unknown]
